FAERS Safety Report 7564791-3 (Version None)
Quarter: 2011Q2

REPORT INFORMATION
  Report Type: 
  Country: None (occurrence: None)
  Receive Date: 20110622
  Receipt Date: 20110214
  Transmission Date: 20111010
  Serious: Yes (Other)
  Sender: FDA-Public Use
  Company Number: US-MYLANLABS-2010S1021682

PATIENT
  Age: 28 Year
  Sex: Female
  Weight: 67.13 kg

DRUGS (6)
  1. RISPERDAL [Concomitant]
     Dates: start: 20101105, end: 20101123
  2. HALOPERIDOL [Concomitant]
     Dates: start: 20101022, end: 20101125
  3. COGENTIN [Concomitant]
     Dates: start: 20101111
  4. CLOZAPINE [Suspect]
     Indication: SCHIZOAFFECTIVE DISORDER
     Route: 048
     Dates: start: 20101110, end: 20101119
  5. DEPAKOTE [Concomitant]
     Dates: start: 20101023, end: 20101119
  6. INVEGA [Concomitant]
     Dates: start: 20101102, end: 20101119

REACTIONS (2)
  - GRANULOCYTOPENIA [None]
  - LEUKOPENIA [None]
